FAERS Safety Report 26171268 (Version 1)
Quarter: 2025Q4

REPORT INFORMATION
  Report Type: Spontaneous
  Country: US (occurrence: None)
  Receive Date: 20251217
  Receipt Date: 20251217
  Transmission Date: 20260117
  Serious: Yes (Hospitalization)
  Sender: FDA-CTU
  Company Number: None

PATIENT
  Sex: Male

DRUGS (2)
  1. DASATINIB [Suspect]
     Active Substance: DASATINIB
     Indication: Chronic myeloid leukaemia
     Dosage: 100 MG DAILY ORAL
     Route: 048
     Dates: start: 20251125
  2. DASATINIB [Suspect]
     Active Substance: DASATINIB
     Indication: Philadelphia chromosome positive

REACTIONS (1)
  - White blood cell count increased [None]
